FAERS Safety Report 8246358-7 (Version None)
Quarter: 2012Q1

REPORT INFORMATION
  Report Type: 
  Country: None (occurrence: None)
  Receive Date: 20120330
  Receipt Date: 20120321
  Transmission Date: 20120608
  Serious: Yes (Other)
  Sender: FDA-Public Use
  Company Number: US-ABBOTT-12P-163-0917224-00

PATIENT
  Sex: Female
  Weight: 54.934 kg

DRUGS (5)
  1. ASPIRIN [Concomitant]
     Indication: FLUSHING
     Dates: start: 20120301
  2. SIMCOR [Suspect]
     Indication: BLOOD CHOLESTEROL INCREASED
     Dosage: 1000/20MG AT BEDTIME
     Route: 048
  3. BONIVA [Concomitant]
     Indication: PRODUCT USED FOR UNKNOWN INDICATION
  4. FLONASE [Concomitant]
     Indication: PRODUCT USED FOR UNKNOWN INDICATION
     Route: 045
  5. ALLERGY [Concomitant]
     Indication: PRODUCT USED FOR UNKNOWN INDICATION
     Route: 050

REACTIONS (12)
  - ANXIETY [None]
  - HYPERHIDROSIS [None]
  - BLOOD URINE PRESENT [None]
  - ERYTHEMA [None]
  - NEPHROLITHIASIS [None]
  - NASAL OBSTRUCTION [None]
  - FLUSHING [None]
  - DYSPNOEA EXERTIONAL [None]
  - PRURITUS [None]
  - VITAMIN D DECREASED [None]
  - FATIGUE [None]
  - DEPRESSION [None]
